FAERS Safety Report 10984119 (Version 1)
Quarter: 2015Q2

REPORT INFORMATION
  Report Type: Report from Study
  Country: IT (occurrence: IT)
  Receive Date: 20150403
  Receipt Date: 20150403
  Transmission Date: 20150821
  Serious: Yes (Hospitalization)
  Sender: FDA-Public Use
  Company Number: IT-ABBVIE-15P-083-1368078-00

PATIENT
  Age: 80 Year
  Sex: Male
  Weight: 63 kg

DRUGS (1)
  1. DUODOPA [Suspect]
     Active Substance: CARBIDOPA\LEVODOPA
     Indication: PARKINSON^S DISEASE
     Dosage: MD 8.2(+3) CR 4.0 ED 2.5
     Route: 050
     Dates: start: 20130930

REACTIONS (3)
  - Pulmonary oedema [Recovered/Resolved]
  - Pneumonia aspiration [Recovered/Resolved]
  - Intestinal obstruction [Recovered/Resolved]

NARRATIVE: CASE EVENT DATE: 201412
